FAERS Safety Report 5252249-6 (Version None)
Quarter: 2007Q1

REPORT INFORMATION
  Report Type: 
  Country: None (occurrence: None)
  Receive Date: 20070301
  Receipt Date: 20070221
  Transmission Date: 20070707
  Serious: Yes (Hospitalization, Other)
  Sender: FDA-Public Use
  Company Number: US-JNJFOC-20070100498

PATIENT
  Sex: Male
  Weight: 67.59 kg

DRUGS (11)
  1. REMICADE [Suspect]
  2. REMICADE [Suspect]
     Dosage: 2 INFUSIONS (DATES UNKNOWN)
  3. REMICADE [Suspect]
  4. REMICADE [Suspect]
  5. REMICADE [Suspect]
  6. REMICADE [Suspect]
  7. REMICADE [Suspect]
     Indication: ANKYLOSING SPONDYLITIS
  8. REMICADE [Suspect]
     Indication: PSORIATIC ARTHROPATHY
  9. PREDNISONE [Concomitant]
  10. NAPROSYN [Concomitant]
  11. INH [Concomitant]

REACTIONS (1)
  - MENINGITIS TUBERCULOUS [None]
